FAERS Safety Report 15243242 (Version 7)
Quarter: 2021Q1

REPORT INFORMATION
  Report Type: Other
  Country: CA (occurrence: CA)
  Receive Date: 20180806
  Receipt Date: 20210308
  Transmission Date: 20210419
  Serious: Yes (Other)
  Sender: FDA-Public Use
  Company Number: CA-ROCHE-2161648

PATIENT
  Age: 37 Year
  Sex: Female

DRUGS (11)
  1. CLONAZEPAM. [Concomitant]
     Active Substance: CLONAZEPAM
  2. FOLIC ACID. [Concomitant]
     Active Substance: FOLIC ACID
  3. MIRTAZAPIN [Concomitant]
     Active Substance: MIRTAZAPINE
  4. ZOPICLON [Concomitant]
     Active Substance: ZOPICLONE
  5. INDOMETHACIN. [Concomitant]
     Active Substance: INDOMETHACIN
  6. OCREVUS [Suspect]
     Active Substance: OCRELIZUMAB
     Indication: RELAPSING-REMITTING MULTIPLE SCLEROSIS
     Dosage: 300 MG DAY 0 AND DAY 14 THEN 600 MG EVERY 6 MONTHS?7/JAN/2019 AND 15/JUL/2019, RECEIVED TREATMENT
     Route: 042
     Dates: start: 20180703
  7. PREGABALIN. [Concomitant]
     Active Substance: PREGABALIN
     Indication: NEURALGIA
  8. LAMOTRIGIN [Concomitant]
     Active Substance: LAMOTRIGINE
  9. PANTOPRAZOLE [Concomitant]
     Active Substance: PANTOPRAZOLE
  10. OXAZEPAM. [Concomitant]
     Active Substance: OXAZEPAM
  11. PHENYTOIN. [Concomitant]
     Active Substance: PHENYTOIN

REACTIONS (23)
  - Multiple sclerosis [Recovering/Resolving]
  - White matter lesion [Unknown]
  - Fall [Unknown]
  - Immunosuppression [Unknown]
  - Pharyngeal disorder [Unknown]
  - Eye infection [Not Recovered/Not Resolved]
  - Gastroenteritis viral [Unknown]
  - Nasopharyngitis [Not Recovered/Not Resolved]
  - Influenza [Unknown]
  - Vertebral osteophyte [Unknown]
  - Multiple sclerosis relapse [Recovered/Resolved]
  - Arthritis [Unknown]
  - Fatigue [Not Recovered/Not Resolved]
  - Nausea [Not Recovered/Not Resolved]
  - Oedema peripheral [Recovering/Resolving]
  - Infection [Unknown]
  - Pain in extremity [Not Recovered/Not Resolved]
  - Insomnia [Not Recovered/Not Resolved]
  - Weight increased [Recovering/Resolving]
  - Chills [Unknown]
  - Pain [Unknown]
  - Vomiting [Recovered/Resolved]
  - Hypersomnia [Not Recovered/Not Resolved]

NARRATIVE: CASE EVENT DATE: 201812
